FAERS Safety Report 5625261-2 (Version None)
Quarter: 2008Q1

REPORT INFORMATION
  Report Type: 
  Country: None (occurrence: None)
  Receive Date: 20080208
  Receipt Date: 20080125
  Transmission Date: 20080703
  Serious: Yes (Other)
  Sender: FDA-Public Use
  Company Number: ENTC2008-0025

PATIENT
  Age: 61 Year
  Sex: Female

DRUGS (4)
  1. STALEVO 100 [Suspect]
     Indication: PARKINSON'S DISEASE
     Dosage: 100/25/200; 50/12, 5/200
  2. MIRAPEXIN [Concomitant]
  3. TRANKIMAZIN [Concomitant]
  4. AMANTADINE HCL [Concomitant]

REACTIONS (2)
  - ASTHENIA [None]
  - CONVULSION [None]
